FAERS Safety Report 12878928 (Version 3)
Quarter: 2017Q1

REPORT INFORMATION
  Report Type: Report from Study
  Country: US (occurrence: US)
  Receive Date: 20161024
  Receipt Date: 20170105
  Transmission Date: 20170428
  Serious: No
  Sender: FDA-Public Use
  Company Number: GXBR2016US003070

PATIENT
  Sex: Male

DRUGS (1)
  1. OMNITROPE [Suspect]
     Active Substance: SOMATROPIN
     Indication: GROWTH HORMONE DEFICIENCY
     Dosage: 1.4 MG, QD
     Route: 065
     Dates: start: 2014

REACTIONS (3)
  - Incorrect dose administered [Recovered/Resolved]
  - Wrong device used [Recovered/Resolved]
  - Failure to thrive [Not Recovered/Not Resolved]
